FAERS Safety Report 9352074 (Version 1)
Quarter: 2013Q2

REPORT INFORMATION
  Report Type: Spontaneous
  Country: CA (occurrence: None)
  Receive Date: 20130612
  Receipt Date: 20130612
  Transmission Date: 20140414
  Serious: Yes (Disabling)
  Sender: FDA-Public Use
  Company Number: SYM-2013-04249

PATIENT
  Sex: Female

DRUGS (1)
  1. ALDARA [Suspect]
     Indication: SKIN DISORDER
     Dosage: 1 SACHET DAILY, TOPICAL
     Route: 061

REACTIONS (2)
  - Influenza like illness [None]
  - Lymphadenopathy [None]
